FAERS Safety Report 20700401 (Version 1)
Quarter: 2022Q1

REPORT INFORMATION
  Report Type: Spontaneous
  Country: US (occurrence: None)
  Receive Date: 20220301
  Receipt Date: 20220301
  Transmission Date: 20220423
  Serious: Yes (Death, Life-Threatening, Disabling)
  Sender: FDA-Public Use
  Company Number: None

PATIENT
  Age: 65 Year
  Sex: Female
  Weight: 40.82 kg

DRUGS (3)
  1. REMDESIVIR [Suspect]
     Active Substance: REMDESIVIR
     Indication: COVID-19
     Dates: start: 20220220, end: 20220222
  2. MELATONIN [Concomitant]
     Active Substance: MELATONIN
  3. TYLENOL [Concomitant]
     Active Substance: ACETAMINOPHEN

REACTIONS (9)
  - Dehydration [None]
  - Coma [None]
  - Hepatic failure [None]
  - Renal failure [None]
  - Lung disorder [None]
  - Cardiac failure [None]
  - Heart rate decreased [None]
  - Hypotension [None]
  - Jaundice [None]

NARRATIVE: CASE EVENT DATE: 20220220
